FAERS Safety Report 4517677-2 (Version None)
Quarter: 2004Q4

REPORT INFORMATION
  Report Type: 
  Country: None (occurrence: None)
  Receive Date: 20041202
  Receipt Date: 20041202
  Transmission Date: 20050328
  Serious: Yes (Other)
  Sender: FDA-Public Use
  Company Number: None

PATIENT
  Age: 44 Year
  Sex: Male
  Weight: 97.977 kg

DRUGS (1)
  1. CIALIS [Suspect]
     Dosage: 1 Q WEEKEND

REACTIONS (3)
  - AGITATION [None]
  - ANXIETY [None]
  - DEPRESSION [None]
